FAERS Safety Report 21765582 (Version 1)
Quarter: 2022Q4

REPORT INFORMATION
  Report Type: Spontaneous
  Country: US (occurrence: None)
  Receive Date: 20221221
  Receipt Date: 20221221
  Transmission Date: 20230113
  Serious: Yes (Hospitalization)
  Sender: FDA-Public Use
  Company Number: None

PATIENT
  Age: 76 Year
  Sex: Female

DRUGS (1)
  1. CAPECITABINE [Suspect]
     Active Substance: CAPECITABINE
     Dosage: FREQUENCY : TWICE A DAY;?
     Route: 048

REACTIONS (14)
  - Paraesthesia [None]
  - Flushing [None]
  - Stomatitis [None]
  - Dysphagia [None]
  - Feeding disorder [None]
  - Skin exfoliation [None]
  - Onychomadesis [None]
  - Diarrhoea [None]
  - Palpitations [None]
  - Nausea [None]
  - Weight increased [None]
  - Dysstasia [None]
  - Gait inability [None]
  - Off label use [None]

NARRATIVE: CASE EVENT DATE: 20221221
